FAERS Safety Report 12458222 (Version 1)
Quarter: 2016Q2

REPORT INFORMATION
  Report Type: Spontaneous
  Country: BR (occurrence: BR)
  Receive Date: 20160613
  Receipt Date: 20160613
  Transmission Date: 20160815
  Serious: Yes (Hospitalization, Other)
  Sender: FDA-Public Use
  Company Number: BR-AMGEN-BRASP2016072115

PATIENT
  Age: 72 Year
  Sex: Male

DRUGS (7)
  1. GRANULOKINE [Suspect]
     Active Substance: FILGRASTIM
     Dosage: 300 MCG/0.5ML, EVERY OTHER DAY
     Route: 058
  2. EPREX [Concomitant]
     Active Substance: ERYTHROPOIETIN
     Dosage: 40000 IU, UNK
  3. HIDANTAL [Concomitant]
     Active Substance: PHENYTOIN SODIUM
     Dosage: UNK
  4. GRANULOKINE [Suspect]
     Active Substance: FILGRASTIM
     Indication: PRODUCT USED FOR UNKNOWN INDICATION
     Dosage: 300 MCG/0.5ML, EVERY OTHER DAY
     Route: 065
     Dates: start: 2000
  5. BACTRIM BALSAMICO F [Concomitant]
     Dosage: UNK
  6. ACYCLOVIR. [Concomitant]
     Active Substance: ACYCLOVIR
     Dosage: UNK
  7. GRANULOKINE [Suspect]
     Active Substance: FILGRASTIM
     Dosage: 300 MCG/0.5ML, EVERY OTHER DAY
     Route: 042
     Dates: start: 201605

REACTIONS (6)
  - Plasma cell myeloma [Not Recovered/Not Resolved]
  - Immunodeficiency [Not Recovered/Not Resolved]
  - Polyneuropathy [Not Recovered/Not Resolved]
  - Platelet count decreased [Not Recovered/Not Resolved]
  - Hospitalisation [Recovered/Resolved]
  - Off label use [Not Recovered/Not Resolved]

NARRATIVE: CASE EVENT DATE: 201605
